FAERS Safety Report 7321766-7 (Version None)
Quarter: 2011Q1

REPORT INFORMATION
  Report Type: 
  Country: None (occurrence: None)
  Receive Date: 20110228
  Receipt Date: 20110222
  Transmission Date: 20110831
  Serious: Yes (Death)
  Sender: FDA-Public Use
  Company Number: IT-PFIZER INC-2009250012

PATIENT
  Age: 75 Year
  Sex: Female

DRUGS (14)
  1. VENACTONE [Concomitant]
  2. CALCIUM SANDOZ C [Concomitant]
  3. DAPTOMYCIN [Suspect]
     Dosage: 420 MG, 1X/DAY
     Dates: start: 20090623, end: 20090723
  4. ALMARYTM [Concomitant]
  5. CATAPRESSAN TTS [Concomitant]
  6. ANTRA [Concomitant]
  7. LASIX [Concomitant]
  8. ALDACTONE [Concomitant]
     Dosage: 100 MG, UNK
     Route: 048
  9. CLEXANE [Concomitant]
     Dosage: 0.6 ML, 2 UNIT DOSE
  10. DIFLUCAN [Suspect]
     Dosage: 100 MG, 1X/DAY
     Dates: start: 20090624, end: 20090724
  11. TAZOCIN [Suspect]
     Indication: SEPSIS
     Dosage: 4.5 G, 3X/DAY
     Route: 042
     Dates: start: 20090627, end: 20090727
  12. FERROGRAD C [Concomitant]
  13. TPN [Concomitant]
  14. ENTEROGERMINA [Concomitant]

REACTIONS (3)
  - ILEUS PARALYTIC [None]
  - GASTROENTERITIS CLOSTRIDIAL [None]
  - MEGACOLON [None]
